FAERS Safety Report 12631783 (Version 2)
Quarter: 2016Q3

REPORT INFORMATION
  Report Type: Spontaneous
  Country: US (occurrence: US)
  Receive Date: 20160808
  Receipt Date: 20160808
  Transmission Date: 20161109
  Serious: No
  Sender: FDA-Public Use
  Company Number: US-BEH-2016061004

PATIENT
  Age: 50 Year
  Sex: Female
  Weight: 94 kg

DRUGS (38)
  1. VERAPAMIL ER [Concomitant]
     Active Substance: VERAPAMIL HYDROCHLORIDE
  2. VITAMIN A AND D [Concomitant]
     Active Substance: LANOLIN\PETROLATUM
  3. CELEBREX [Concomitant]
     Active Substance: CELECOXIB
  4. NITROSTAT [Concomitant]
     Active Substance: NITROGLYCERIN
  5. HIZENTRA [Suspect]
     Active Substance: HUMAN IMMUNOGLOBULIN G
     Indication: IMMUNODEFICIENCY COMMON VARIABLE
     Route: 058
  6. DIPHENHYDRAMINE. [Concomitant]
     Active Substance: DIPHENHYDRAMINE
  7. FOLIC ACID. [Concomitant]
     Active Substance: FOLIC ACID
  8. CYMBALTA [Concomitant]
     Active Substance: DULOXETINE HYDROCHLORIDE
  9. FLONASE [Concomitant]
     Active Substance: FLUTICASONE PROPIONATE
  10. LIDODERM [Concomitant]
     Active Substance: LIDOCAINE
  11. HIZENTRA [Suspect]
     Active Substance: HUMAN IMMUNOGLOBULIN G
     Route: 058
  12. ACETAMINOPHEN. [Concomitant]
     Active Substance: ACETAMINOPHEN
  13. COMBIVENT [Concomitant]
     Active Substance: ALBUTEROL SULFATE\IPRATROPIUM BROMIDE
  14. STERILE SALINE NASAL MIST [Concomitant]
  15. VASOTEC [Concomitant]
     Active Substance: ENALAPRIL MALEATE
  16. PRILOSEC [Concomitant]
     Active Substance: OMEPRAZOLE MAGNESIUM
  17. RESPIMAT [Concomitant]
  18. MUPIROCIN. [Concomitant]
     Active Substance: MUPIROCIN
  19. AMITRIPTYLINE [Concomitant]
     Active Substance: AMITRIPTYLINE
  20. VITAMIN B1 [Concomitant]
     Active Substance: THIAMINE HYDROCHLORIDE
  21. SINGULAIR [Concomitant]
     Active Substance: MONTELUKAST SODIUM
  22. GABAPENTIN. [Concomitant]
     Active Substance: GABAPENTIN
  23. IMITREX [Concomitant]
     Active Substance: SUMATRIPTAN SUCCINATE
  24. CLONAZEPAM. [Concomitant]
     Active Substance: CLONAZEPAM
  25. SALINE NASAL GEL [Concomitant]
  26. VITAMIN C [Concomitant]
     Active Substance: ASCORBIC ACID
  27. IRON [Concomitant]
     Active Substance: IRON
  28. SINEMET [Concomitant]
     Active Substance: CARBIDOPA\LEVODOPA
  29. GEODON [Concomitant]
     Active Substance: ZIPRASIDONE HYDROCHLORIDE\ZIPRASIDONE MESYLATE
  30. HIZENTRA [Suspect]
     Active Substance: HUMAN IMMUNOGLOBULIN G
     Route: 058
  31. POTASSIUM GLUC [Concomitant]
  32. VITAMIN K1 [Concomitant]
     Active Substance: PHYTONADIONE
  33. STRATTERA [Concomitant]
     Active Substance: ATOMOXETINE HYDROCHLORIDE
  34. EPIPEN [Concomitant]
     Active Substance: EPINEPHRINE
  35. MUCINEX [Concomitant]
     Active Substance: GUAIFENESIN
  36. CENTRUM [Concomitant]
     Active Substance: VITAMINS
  37. ALLEGRA [Concomitant]
     Active Substance: FEXOFENADINE HYDROCHLORIDE
  38. DEMADEX [Concomitant]
     Active Substance: TORSEMIDE

REACTIONS (1)
  - Bronchitis [Unknown]

NARRATIVE: CASE EVENT DATE: 201512
